FAERS Safety Report 4940945-7 (Version None)
Quarter: 2006Q1

REPORT INFORMATION
  Report Type: 
  Country: None (occurrence: None)
  Receive Date: 20060313
  Receipt Date: 20060213
  Transmission Date: 20060701
  Serious: Yes (Other)
  Sender: FDA-Public Use
  Company Number: PHEH2006US02144

PATIENT
  Sex: Female

DRUGS (10)
  1. ZOMETA [Suspect]
     Indication: MULTIPLE MYELOMA
     Dosage: 4 MG, MONTHLY
     Dates: start: 20020314, end: 20050503
  2. ACTONEL [Concomitant]
     Dates: start: 20010401
  3. PREDNISONE [Concomitant]
  4. ADVIL [Concomitant]
     Dosage: UNK, PRN
  5. TOPROL-XL [Concomitant]
     Dosage: 100 MG, UNK
  6. PEPCID [Concomitant]
  7. LOTREL [Concomitant]
  8. PAXIL [Concomitant]
  9. ACETYLSALICYLIC ACID SRT [Concomitant]
  10. ARANESP [Concomitant]

REACTIONS (3)
  - ARTHRALGIA [None]
  - OSTEONECROSIS [None]
  - PAIN [None]
